FAERS Safety Report 8223175-5 (Version None)
Quarter: 2012Q1

REPORT INFORMATION
  Report Type: 
  Country: None (occurrence: None)
  Receive Date: 20120321
  Receipt Date: 20120312
  Transmission Date: 20120608
  Serious: Yes (Other)
  Sender: FDA-Public Use
  Company Number: US-BRISTOL-MYERS SQUIBB COMPANY-16388589

PATIENT
  Age: 64 Year
  Sex: Female
  Weight: 82 kg

DRUGS (8)
  1. LISINOPRIL [Concomitant]
  2. MS CONTIN [Concomitant]
     Indication: BACK PAIN
  3. NEURONTIN [Concomitant]
  4. KOMBIGLYZE XR [Suspect]
     Indication: TYPE 2 DIABETES MELLITUS
     Dosage: KOMBIGLYZE XR 5/500
     Route: 048
     Dates: start: 20110506, end: 20110922
  5. PREVACID [Concomitant]
  6. MOBIC [Concomitant]
  7. REQUIP [Concomitant]
  8. ONGLYZA [Suspect]
     Indication: TYPE 2 DIABETES MELLITUS

REACTIONS (6)
  - NAUSEA [None]
  - DIZZINESS [None]
  - DIARRHOEA [None]
  - ABDOMINAL PAIN [None]
  - VOMITING [None]
  - ASTHENIA [None]
